FAERS Safety Report 8021477-9 (Version None)
Quarter: 2011Q4

REPORT INFORMATION
  Report Type: 
  Country: None (occurrence: None)
  Receive Date: 20111230
  Receipt Date: 20111230
  Transmission Date: 20120403
  Serious: No
  Sender: FDA-Public Use
  Company Number: None

PATIENT
  Sex: Female

DRUGS (2)
  1. PEGASYS [Suspect]
     Dosage: 160 MCG QW SQ
     Route: 058
     Dates: start: 20111013, end: 20111229
  2. RIBASPHERE [Suspect]
     Dosage: 600MG/400MG AM AND PM QD PO
     Route: 048
     Dates: start: 20111013, end: 20111229

REACTIONS (4)
  - LETHARGY [None]
  - FATIGUE [None]
  - GALLBLADDER NON-FUNCTIONING [None]
  - CHOLELITHIASIS [None]
